FAERS Safety Report 6683300-4 (Version None)
Quarter: 2010Q2

REPORT INFORMATION
  Report Type: 
  Country: None (occurrence: None)
  Receive Date: 20100415
  Receipt Date: 20100407
  Transmission Date: 20101027
  Serious: Yes (Other)
  Sender: FDA-Public Use
  Company Number: US-SANOFI-AVENTIS-2010SA012618

PATIENT
  Age: 75 Year
  Sex: Female

DRUGS (2)
  1. OPTICLICK [Suspect]
     Dates: start: 20060101
  2. APIDRA [Suspect]
     Dosage: SLIDING SCALE
     Route: 065
     Dates: start: 20060101

REACTIONS (3)
  - MACULAR DEGENERATION [None]
  - TRIGGER FINGER [None]
  - VISUAL ACUITY REDUCED [None]
